FAERS Safety Report 7743052-3 (Version None)
Quarter: 2011Q3

REPORT INFORMATION
  Report Type: 
  Country: None (occurrence: None)
  Receive Date: 20110901
  Receipt Date: 20110825
  Transmission Date: 20111222
  Serious: Yes (Other)
  Sender: FDA-Public Use
  Company Number: 2011SP040607

PATIENT
  Age: 43 Year
  Sex: Female

DRUGS (1)
  1. SAPHRIS [Suspect]
     Indication: BIPOLAR DISORDER
     Dosage: 1 DF/HS
     Dates: start: 20110401

REACTIONS (1)
  - ELECTROCARDIOGRAM QT PROLONGED [None]
